FAERS Safety Report 4365792-9 (Version None)
Quarter: 2004Q2

REPORT INFORMATION
  Report Type: 
  Country: None (occurrence: None)
  Receive Date: 20040520
  Receipt Date: 20040510
  Transmission Date: 20050107
  Serious: Yes (Other)
  Sender: FDA-Public Use
  Company Number: 7963

PATIENT

DRUGS (4)
  1. LEUCOVORIN CALCIUM [Suspect]
     Indication: RENAL CELL CARCINOMA STAGE UNSPECIFIED
     Dosage: 200 MG/M2 PER_CYCLE IV
     Route: 042
  2. FLUOROURACIL [Suspect]
     Indication: RENAL CELL CARCINOMA STAGE UNSPECIFIED
     Dosage: 1800 MG/M2 PER_CYCLE IV
     Route: 042
  3. PROLEUKIN [Concomitant]
  4. INTERFERON ALFA [Concomitant]

REACTIONS (2)
  - DISEASE RECURRENCE [None]
  - THROMBOCYTOPENIC PURPURA [None]
